FAERS Safety Report 10559003 (Version 1)
Quarter: 2014Q4

REPORT INFORMATION
  Report Type: Spontaneous
  Country: US (occurrence: US)
  Receive Date: 20141103
  Receipt Date: 20141103
  Transmission Date: 20150529
  Serious: Yes (Hospitalization)
  Sender: FDA-Public Use
  Company Number: US-AMGEN-USASP2014083640

PATIENT
  Age: 60 Year
  Sex: Female

DRUGS (1)
  1. EPOGEN [Suspect]
     Active Substance: ERYTHROPOIETIN
     Indication: CHRONIC KIDNEY DISEASE
     Dosage: 15000 UNIT, THREE TIMES PER WEEK
     Route: 065
     Dates: start: 2011

REACTIONS (2)
  - Drug ineffective [Unknown]
  - Haemoglobin abnormal [Unknown]
